FAERS Safety Report 6383215-5 (Version None)
Quarter: 2009Q3

REPORT INFORMATION
  Report Type: 
  Country: None (occurrence: None)
  Receive Date: 20090929
  Receipt Date: 20090914
  Transmission Date: 20100115
  Serious: Yes (Death, Hospitalization)
  Sender: FDA-Public Use
  Company Number: 2009AL000273

PATIENT
  Age: 46 Year
  Sex: Male

DRUGS (34)
  1. DIGOXIN [Suspect]
     Indication: CARDIAC DISORDER
     Dosage: 0.125MG, DAILY, PO
     Route: 048
     Dates: start: 19961012
  2. ACTOS [Concomitant]
  3. ASPIRIN [Concomitant]
  4. AZITHROMYCIN [Concomitant]
  5. CEPHALEXIN [Concomitant]
  6. FUROSEMIDE [Concomitant]
  7. METOCLOPRAM [Concomitant]
  8. NOVOLOG [Concomitant]
  9. CARVEDILOL [Concomitant]
  10. ALBUTEROL [Concomitant]
  11. PLAVIX [Concomitant]
  12. RANITIDINE [Concomitant]
  13. SINGULAIR [Concomitant]
  14. SPIRONOLACTONE [Concomitant]
  15. LIPITOR [Concomitant]
  16. LANTUS [Concomitant]
  17. INDOMETHACIN [Concomitant]
  18. PRECOSE [Concomitant]
  19. ZAROXOLYN [Concomitant]
  20. DEMADEX [Concomitant]
  21. K-DUR [Concomitant]
  22. ZOCOR [Concomitant]
  23. AMIODARONE [Concomitant]
  24. ZESTRIL [Concomitant]
  25. MAG OXIDE [Concomitant]
  26. LORCET-HD [Concomitant]
  27. LYSINE [Concomitant]
  28. CIPRO [Concomitant]
  29. QUINAGLUTE [Concomitant]
  30. NORVASC [Concomitant]
  31. CATAPRES [Concomitant]
  32. FOLATE [Concomitant]
  33. INSULIN [Concomitant]
  34. CALAN [Concomitant]

REACTIONS (25)
  - ACUTE RESPIRATORY FAILURE [None]
  - ANGINA UNSTABLE [None]
  - ANXIETY [None]
  - ATELECTASIS [None]
  - ATRIAL FIBRILLATION [None]
  - CARDIAC FAILURE CONGESTIVE [None]
  - CELLULITIS [None]
  - CORONARY ARTERY DISEASE [None]
  - CORONARY ARTERY STENOSIS [None]
  - DIABETIC GASTROPARESIS [None]
  - DIALYSIS [None]
  - HERPES VIRUS INFECTION [None]
  - HYPERTENSION [None]
  - HYPOXIA [None]
  - MYOCARDIAL INFARCTION [None]
  - NAUSEA [None]
  - PAIN [None]
  - PERICARDIAL EFFUSION [None]
  - PNEUMONIA [None]
  - PRODUCTIVE COUGH [None]
  - PYREXIA [None]
  - RENAL FAILURE CHRONIC [None]
  - RENAL IMPAIRMENT [None]
  - UPPER GASTROINTESTINAL HAEMORRHAGE [None]
  - VOMITING [None]
